FAERS Safety Report 15332464 (Version 2)
Quarter: 2018Q3

REPORT INFORMATION
  Report Type: Report from Study
  Country: None (occurrence: US)
  Receive Date: 20180830
  Receipt Date: 20180920
  Transmission Date: 20181010
  Serious: No
  Sender: FDA-Public Use
  Company Number: US-ABBVIE-18K-163-2466779-00

PATIENT
  Sex: Female
  Weight: 100.33 kg

DRUGS (4)
  1. HUMIRA [Suspect]
     Active Substance: ADALIMUMAB
     Indication: PSORIATIC ARTHROPATHY
     Route: 058
     Dates: start: 201805, end: 201808
  2. HUMIRA [Suspect]
     Active Substance: ADALIMUMAB
     Indication: PSORIASIS
  3. ELIQUIS [Concomitant]
     Active Substance: APIXABAN
     Indication: FACTOR V LEIDEN MUTATION
  4. PLAVIX [Concomitant]
     Active Substance: CLOPIDOGREL BISULFATE
     Indication: FACTOR V LEIDEN MUTATION

REACTIONS (4)
  - Menorrhagia [Unknown]
  - Ovarian cyst [Unknown]
  - Endometrial thickening [Not Recovered/Not Resolved]
  - Back pain [Unknown]
